FAERS Safety Report 24361907 (Version 1)
Quarter: 2024Q3

REPORT INFORMATION
  Report Type: Spontaneous
  Country: IT (occurrence: IT)
  Receive Date: 20240925
  Receipt Date: 20240925
  Transmission Date: 20241016
  Serious: Yes (Other)
  Sender: AUROBINDO
  Company Number: IT-Zentiva-2024-ZT-000112

PATIENT
  Age: 82 Year
  Sex: Female

DRUGS (8)
  1. ACETAMINOPHEN [Suspect]
     Active Substance: ACETAMINOPHEN
     Indication: Eye pain
     Dosage: UNK
     Route: 065
  2. ACETAMINOPHEN [Suspect]
     Active Substance: ACETAMINOPHEN
     Indication: Inflammation
  3. CYCLOPHOSPHAMIDE [Suspect]
     Active Substance: CYCLOPHOSPHAMIDE
     Indication: Eye pain
     Dosage: UNK
     Route: 065
  4. CYCLOPHOSPHAMIDE [Suspect]
     Active Substance: CYCLOPHOSPHAMIDE
     Indication: Inflammation
  5. METHOTREXATE [Suspect]
     Active Substance: METHOTREXATE
     Indication: Eye pain
     Dosage: UNK
     Route: 065
  6. METHOTREXATE [Suspect]
     Active Substance: METHOTREXATE
     Indication: Inflammation
  7. TAPENTADOL [Suspect]
     Active Substance: TAPENTADOL
     Indication: Eye pain
     Dosage: UNK
     Route: 065
  8. TAPENTADOL [Suspect]
     Active Substance: TAPENTADOL
     Indication: Inflammation

REACTIONS (2)
  - Drug resistance [Unknown]
  - Drug ineffective [Unknown]
